FAERS Safety Report 5563457-9 (Version None)
Quarter: 2007Q4

REPORT INFORMATION
  Report Type: 
  Country: None (occurrence: None)
  Receive Date: 20071217
  Receipt Date: 20070515
  Transmission Date: 20080405
  Serious: No
  Sender: FDA-Public Use
  Company Number: US-ASTRAZENECA-2007UW12027

PATIENT
  Age: 60 Year
  Sex: Female
  Weight: 173.3 kg

DRUGS (14)
  1. CRESTOR [Suspect]
     Indication: DYSLIPIDAEMIA
     Route: 048
  2. NABUMETONE [Concomitant]
  3. CLARITIN [Concomitant]
  4. ACCOLATE [Concomitant]
  5. AVANDIA [Concomitant]
  6. SYNTHROID [Concomitant]
  7. SULAR [Concomitant]
  8. BENICAR [Concomitant]
  9. TYLENOL [Concomitant]
  10. BENADRYL [Concomitant]
  11. FLEXERIL [Concomitant]
  12. KAOPECTATE [Concomitant]
  13. MAXAIR [Concomitant]
     Route: 055
  14. VITAMIN CAP [Concomitant]

REACTIONS (3)
  - ENERGY INCREASED [None]
  - NAIL DISORDER [None]
  - POLLAKIURIA [None]
